FAERS Safety Report 7981777-5 (Version None)
Quarter: 2011Q4

REPORT INFORMATION
  Report Type: 
  Country: None (occurrence: None)
  Receive Date: 20111215
  Receipt Date: 20111212
  Transmission Date: 20120403
  Serious: No
  Sender: FDA-Public Use
  Company Number: US-TEVA-313412USA

PATIENT
  Sex: Female
  Weight: 56.75 kg

DRUGS (1)
  1. PLAN B ONE-STEP [Suspect]
     Indication: POST COITAL CONTRACEPTION
     Dosage: 1.5 MILLIGRAM;
     Route: 048
     Dates: start: 20111209, end: 20111209

REACTIONS (6)
  - BURNING SENSATION [None]
  - FATIGUE [None]
  - NAUSEA [None]
  - FLATULENCE [None]
  - PYREXIA [None]
  - HYPERHIDROSIS [None]
